FAERS Safety Report 5256662-2 (Version None)
Quarter: 2007Q1

REPORT INFORMATION
  Report Type: 
  Country: None (occurrence: None)
  Receive Date: 20070306
  Receipt Date: 20070221
  Transmission Date: 20070707
  Serious: Yes (Other)
  Sender: FDA-Public Use
  Company Number: US-ELI_LILLY_AND_COMPANY-US200703000171

PATIENT
  Age: 13 Year
  Sex: Female
  Weight: 54.4 kg

DRUGS (1)
  1. HUMATROPE [Suspect]
     Indication: TURNER'S SYNDROME
     Dosage: 0.375 MG/KG, WEEKLY (1/W)

REACTIONS (2)
  - EPIPHYSIOLYSIS [None]
  - OVARIAN FAILURE [None]
